FAERS Safety Report 6190113-9 (Version None)
Quarter: 2009Q2

REPORT INFORMATION
  Report Type: 
  Country: None (occurrence: None)
  Receive Date: 20090514
  Receipt Date: 20081210
  Transmission Date: 20091009
  Serious: Yes (Life-Threatening, Disabling)
  Sender: FDA-Public Use
  Company Number: DE-BAYER-200918713GPV

PATIENT
  Age: 59 Year
  Sex: Female
  Weight: 90 kg

DRUGS (5)
  1. REFLUDAN [Suspect]
     Indication: THROMBECTOMY
     Dosage: TOTAL DAILY DOSE: 36 IU
     Route: 042
     Dates: start: 20081117, end: 20081117
  2. ETOMIDATE [Concomitant]
     Indication: ANAESTHESIA
     Dates: start: 20081117
  3. FENTANYL [Concomitant]
     Indication: ANAESTHESIA
     Dates: start: 20081117
  4. ROCURONIUM BROMIDE [Concomitant]
     Indication: ANAESTHESIA
     Dates: start: 20081117
  5. SEVOFLURANE [Concomitant]
     Indication: ANAESTHESIA
     Dates: start: 20081117

REACTIONS (2)
  - ANAPHYLACTIC SHOCK [None]
  - CARDIAC ARREST [None]
